FAERS Safety Report 6370816-3 (Version None)
Quarter: 2009Q3

REPORT INFORMATION
  Report Type: 
  Country: None (occurrence: None)
  Receive Date: 20090923
  Receipt Date: 20070618
  Transmission Date: 20100115
  Serious: Yes (Other)
  Sender: FDA-Public Use
  Company Number: US-ASTRAZENECA-2006UW24155

PATIENT
  Age: 24666 Day
  Sex: Male
  Weight: 72.6 kg

DRUGS (19)
  1. SEROQUEL [Suspect]
     Indication: DEPRESSION
     Route: 048
     Dates: end: 20030101
  2. SEROQUEL [Suspect]
     Indication: ANXIETY
     Route: 048
     Dates: end: 20030101
  3. SEROQUEL [Suspect]
     Indication: NERVOUSNESS
     Route: 048
     Dates: end: 20030101
  4. SEROQUEL [Suspect]
     Route: 048
     Dates: start: 20050203
  5. SEROQUEL [Suspect]
     Route: 048
     Dates: start: 20050203
  6. SEROQUEL [Suspect]
     Route: 048
     Dates: start: 20050203
  7. STELAZINE [Concomitant]
     Dates: start: 19700101
  8. THORAZINE [Concomitant]
     Dates: start: 19700101
  9. ZYPREXA [Concomitant]
     Dates: start: 19900101
  10. HYDROCODONE BITARTRATE AND ACETAMINOPHEN [Concomitant]
     Indication: PAIN
     Dosage: 10/500-10/650 (1 TABLET FOUR TIMES A DAY)
     Route: 048
     Dates: start: 20011115
  11. LIPITOR [Concomitant]
     Dosage: 10-20 MG
     Route: 048
     Dates: start: 20020708
  12. VIOXX [Concomitant]
     Route: 048
     Dates: start: 20030617
  13. PAXIL [Concomitant]
     Route: 048
     Dates: start: 20030603
  14. LORATADINE [Concomitant]
     Route: 048
     Dates: start: 20031101
  15. CLARINEX [Concomitant]
     Route: 048
     Dates: start: 20020313
  16. ACTOS [Concomitant]
     Dosage: 30-45 MG
     Route: 048
     Dates: start: 20020614
  17. CELEBREX [Concomitant]
     Route: 048
  18. METFORMIN HCL [Concomitant]
     Route: 048
  19. TRIAMCINOLONE [Concomitant]
     Route: 061

REACTIONS (3)
  - DIABETES MELLITUS [None]
  - PANCREATITIS [None]
  - TYPE 2 DIABETES MELLITUS [None]
